FAERS Safety Report 4523015-1 (Version None)
Quarter: 2004Q4

REPORT INFORMATION
  Report Type: 
  Country: None (occurrence: None)
  Receive Date: 20041208
  Receipt Date: 20041125
  Transmission Date: 20050328
  Serious: Yes (Life-Threatening)
  Sender: FDA-Public Use
  Company Number: 2004099600

PATIENT
  Age: 60 Year
  Sex: Male
  Weight: 95 kg

DRUGS (6)
  1. NEURONTIN [Suspect]
     Indication: HEADACHE
     Dosage: 1200 MG, ORAL
     Route: 048
     Dates: start: 20041101, end: 20041102
  2. DOXEPIN HYDROCHLORIDE (DOXEPIN HYDROCHLORIDE) [Concomitant]
  3. FENTANYL [Concomitant]
  4. IBUPROFEN [Concomitant]
  5. ACYCLOVIR [Concomitant]
  6. DICLOFENAC   (DICLOFENAC SODIUM) [Suspect]
     Indication: ILL-DEFINED DISORDER

REACTIONS (10)
  - ANXIETY [None]
  - ATAXIA [None]
  - BLOOD CREATINE PHOSPHOKINASE INCREASED [None]
  - CHOREA [None]
  - CLONUS [None]
  - DEPRESSED LEVEL OF CONSCIOUSNESS [None]
  - ENCEPHALITIS VIRAL [None]
  - HEADACHE [None]
  - PSYCHOMOTOR HYPERACTIVITY [None]
  - RENAL FAILURE [None]
